FAERS Safety Report 8199059-8 (Version None)
Quarter: 2012Q1

REPORT INFORMATION
  Report Type: 
  Country: None (occurrence: None)
  Receive Date: 20120309
  Receipt Date: 20120229
  Transmission Date: 20120608
  Serious: Yes (Hospitalization, Disabling)
  Sender: FDA-Public Use
  Company Number: FR-GLAXOSMITHKLINE-B0784829A

PATIENT
  Sex: Female

DRUGS (5)
  1. BISOPROLOL FUMARATE [Concomitant]
  2. PANTOPRAZOLE [Concomitant]
  3. ARIXTRA [Suspect]
     Indication: ATRIAL FIBRILLATION
     Dosage: 5MG PER DAY
     Route: 058
     Dates: start: 20110801, end: 20120111
  4. FUROSEMIDE [Concomitant]
  5. ZOLPIDEM [Concomitant]

REACTIONS (5)
  - MUSCLE HAEMORRHAGE [None]
  - OFF LABEL USE [None]
  - ANAEMIA [None]
  - INCORRECT DRUG ADMINISTRATION DURATION [None]
  - WALKING DISABILITY [None]
